FAERS Safety Report 13679662 (Version 3)
Quarter: 2017Q2

REPORT INFORMATION
  Report Type: Spontaneous
  Country: FR (occurrence: FR)
  Receive Date: 20170622
  Receipt Date: 20170629
  Transmission Date: 20170830
  Serious: Yes (Death, Hospitalization, Other)
  Sender: FDA-Public Use
  Company Number: FR-PFIZER INC-2017271714

PATIENT
  Age: 71 Year
  Sex: Male

DRUGS (22)
  1. PANTOPRAZOLE [Suspect]
     Active Substance: PANTOPRAZOLE
     Dosage: UNK
     Route: 042
     Dates: start: 20161225, end: 20170119
  2. LANTUS [Concomitant]
     Active Substance: INSULIN GLARGINE
     Dosage: UNK
  3. PIPERACILLIN/TAZOBACTAM [Suspect]
     Active Substance: PIPERACILLIN SODIUM\TAZOBACTAM SODIUM
     Indication: SKIN INFECTION
     Dosage: 1 DF, 3X/DAY
     Route: 042
     Dates: start: 20161204, end: 20170130
  4. SYMBICORT [Suspect]
     Active Substance: BUDESONIDE\FORMOTEROL FUMARATE DIHYDRATE
     Dosage: UNK, QD
     Route: 055
     Dates: start: 20161220, end: 20170119
  5. PRIMPERAN [Suspect]
     Active Substance: METOCLOPRAMIDE HYDROCHLORIDE
     Dosage: 10 MG, TID (3 DF, TID (1 DF TID))
     Route: 048
     Dates: start: 20161224, end: 20170119
  6. QUESTRAN [Suspect]
     Active Substance: CHOLESTYRAMINE
     Dosage: 4 G, QD
     Route: 048
     Dates: start: 20161216, end: 20170119
  7. NEFOPAM [Suspect]
     Active Substance: NEFOPAM
     Dosage: UNK
     Route: 042
     Dates: start: 20161202, end: 20170119
  8. RIFADIN [Suspect]
     Active Substance: RIFAMPIN
     Dosage: UNK
     Route: 065
  9. LOPERAMIDE [Concomitant]
     Active Substance: LOPERAMIDE
     Dosage: UNK
  10. DIFFU-K [Concomitant]
     Active Substance: POTASSIUM CHLORIDE
     Dosage: UNK
  11. RACECADOTRIL [Suspect]
     Active Substance: RACECADOTRIL
     Dosage: 100 MG, TID (1 DF)
     Route: 048
     Dates: start: 20161209, end: 20170119
  12. ULTRAVIST [Suspect]
     Active Substance: IOPROMIDE
     Indication: CHEST SCAN
     Dosage: 370 MG, UNK
     Route: 042
     Dates: start: 20170116, end: 20170116
  13. POLARAMINE [Concomitant]
     Active Substance: DEXCHLORPHENIRAMINE MALEATE
     Dosage: UNK
  14. TRAMADOL HYDROCHLORID/PARACETAMOL [Suspect]
     Active Substance: ACETAMINOPHEN\TRAMADOL HYDROCHLORIDE
     Dosage: UNK, QID
     Route: 048
     Dates: start: 20161201, end: 20170119
  15. DUPHALAC /01526201/ [Concomitant]
     Dosage: UNK
  16. KARDEGIC [Concomitant]
     Active Substance: ASPIRIN LYSINE
     Dosage: UNK
  17. LINEZOLID. [Suspect]
     Active Substance: LINEZOLID
     Indication: SKIN INFECTION
     Dosage: 600 MG, BID
     Route: 048
     Dates: start: 20161222, end: 20170110
  18. CUBICIN [Suspect]
     Active Substance: DAPTOMYCIN
     Dosage: 800 MG, QD
     Route: 042
     Dates: start: 20170110, end: 20170201
  19. LOVENOX [Concomitant]
     Active Substance: ENOXAPARIN SODIUM
     Dosage: UNK
  20. VANCOMYCIN HYDROCHLORIDE. [Suspect]
     Active Substance: VANCOMYCIN HYDROCHLORIDE
     Dosage: UNK
     Route: 065
  21. UMULINE ZINC COMPOSE [Concomitant]
     Dosage: UNK
  22. FUROSEMIDE. [Concomitant]
     Active Substance: FUROSEMIDE
     Dosage: UNK

REACTIONS (18)
  - Restlessness [Unknown]
  - Pulmonary interstitial emphysema syndrome [Unknown]
  - Sepsis [Unknown]
  - Death [Fatal]
  - Hyperammonaemia [Not Recovered/Not Resolved]
  - Diffuse alveolar damage [Not Recovered/Not Resolved]
  - Glomerular filtration rate decreased [Unknown]
  - Eczema [Unknown]
  - Alveolar lung disease [Unknown]
  - Acute kidney injury [Unknown]
  - Thrombocytopenia [Unknown]
  - Eosinophilia [Not Recovered/Not Resolved]
  - Hepatic encephalopathy [Unknown]
  - Eosinophilic pneumonia [Unknown]
  - Dyspnoea [Unknown]
  - Rectal haemorrhage [Unknown]
  - Rash maculo-papular [Not Recovered/Not Resolved]
  - Generalised oedema [Unknown]

NARRATIVE: CASE EVENT DATE: 20161227
